FAERS Safety Report 9014027 (Version 1)
Quarter: 2013Q1

REPORT INFORMATION
  Report Type: Spontaneous
  Country: US (occurrence: None)
  Receive Date: 20130109
  Receipt Date: 20130109
  Transmission Date: 20140127
  Serious: Yes (Hospitalization)
  Sender: FDA-Public Use
  Company Number: None

PATIENT
  Sex: Female

DRUGS (2)
  1. NITROFURANTOIN MACROCRYSTAL [Suspect]
     Dosage: 1 BID PO
     Route: 048
     Dates: start: 20121120, end: 20121121
  2. NITROFURANTOIN [Suspect]
     Dosage: 1 QD PO
     Route: 048
     Dates: start: 20121219, end: 20121219

REACTIONS (5)
  - Polyuria [None]
  - Chest discomfort [None]
  - Heart rate increased [None]
  - White blood cell count decreased [None]
  - Ill-defined disorder [None]
